FAERS Safety Report 17823518 (Version 1)
Quarter: 2020Q2

REPORT INFORMATION
  Report Type: Spontaneous
  Country: US (occurrence: US)
  Receive Date: 20200524
  Receipt Date: 20200524
  Transmission Date: 20200714
  Serious: Yes (Other)
  Sender: FDA-Public Use
  Company Number: None

PATIENT
  Age: 47 Year
  Sex: Female
  Weight: 56.25 kg

DRUGS (10)
  1. BUPROPION XL 300 MG [Concomitant]
     Active Substance: BUPROPION
  2. NASACORT NOSE SPRAY [Concomitant]
  3. JOINTS OMEGA- [Concomitant]
  4. TOLCYCLEN [Concomitant]
  5. GLUCOSAMINE + CHONDROITIN [Concomitant]
  6. TERBINAFINE 250MG TABLETS [Suspect]
     Active Substance: TERBINAFINE
     Indication: FUNGAL INFECTION
     Dosage: ?          QUANTITY:1 TABLET(S);?
     Route: 048
     Dates: start: 20200507, end: 20200516
  7. ESCITALOPRAM [Concomitant]
     Active Substance: ESCITALOPRAM OXALATE
  8. VITAMIN D3 [Concomitant]
     Active Substance: CHOLECALCIFEROL
  9. MONKELUKAST [Concomitant]
  10. WOMEN^S DAILY MULTIVITAMINSN TURMERIC [Concomitant]

REACTIONS (2)
  - Pruritus [None]
  - Urticaria [None]

NARRATIVE: CASE EVENT DATE: 20200516
